FAERS Safety Report 7487185-8 (Version None)
Quarter: 2011Q2

REPORT INFORMATION
  Report Type: 
  Country: None (occurrence: None)
  Receive Date: 20110510
  Receipt Date: 20110503
  Transmission Date: 20111010
  Serious: Yes (Other)
  Sender: FDA-Public Use
  Company Number: CIP10002162

PATIENT
  Age: 80 Year
  Sex: Female
  Weight: 77.1 kg

DRUGS (33)
  1. VESICARE [Concomitant]
  2. CICLOPIROX (CICLOPIROX) [Concomitant]
  3. FLUOCINONIDE [Concomitant]
  4. AZITHROMYCIN [Concomitant]
  5. BENZONATATE [Concomitant]
  6. CALCIUM (CALCIUM) [Concomitant]
  7. ZOCOR [Concomitant]
  8. NEOMYCIN [Concomitant]
  9. TOPROL-XL [Concomitant]
  10. ZOLOFT [Concomitant]
  11. MOBIC [Concomitant]
  12. ACTONEL [Suspect]
     Dosage: 35 MG ONCE WEEKLY, ORAL
     Route: 048
     Dates: start: 20061013, end: 20080701
  13. DOXYCYCLINE [Concomitant]
  14. GATIFLOXACIN [Concomitant]
  15. SYNTHROID (LEVOTHYROSINE SODIUM) [Concomitant]
  16. CELEBREX [Concomitant]
  17. DARVOCET-N (DEXTROPROPOXYPHENE NAPSILATE, PARACETAMOL) [Concomitant]
  18. VYTORIN [Concomitant]
  19. ACIPHEX [Concomitant]
  20. TUSSIONEX PENNKINETIC (CHLORPHENAMINE, HYDROCODONE) [Concomitant]
  21. FOSAMAX [Suspect]
     Indication: OSTEOPOROSIS
     Dosage: 70 MG ONCE WEEKLY, ORAL
     Route: 048
     Dates: start: 20010626
  22. LOTREL /01289101/ (AMLODIPINE, BENAZEPRIL HYDROHCLORIDE) [Concomitant]
  23. LOTRISONE [Concomitant]
  24. ERYTHROMYCIN [Concomitant]
  25. PROTONIX [Concomitant]
  26. ASPIRIN BUFFERED (ACETYLSALICYLIC ACID) [Concomitant]
  27. CENTRUM SILVER /01292501/ (ASCORBIC ACID, CALCIUM, MINERALS NOS, RETIN [Concomitant]
  28. OXYBUTYNIN [Concomitant]
  29. CIPROFLOXACIN [Concomitant]
  30. KETOROLAC (KETOROLAC) [Concomitant]
  31. LOVAZA [Concomitant]
  32. MULTIVITAMINS (ASCORBIC ACID, ERGOCALCIFEROL, FOLCI CACID, NICOTINAMID [Concomitant]
  33. MICONAZOLE (MICONAZOLE) [Concomitant]

REACTIONS (16)
  - TOOTH FRACTURE [None]
  - DENTAL CARIES [None]
  - IMPAIRED HEALING [None]
  - OSTEONECROSIS OF JAW [None]
  - LOW TURNOVER OSTEOPATHY [None]
  - BONE DISORDER [None]
  - MUSCULOSKELETAL PAIN [None]
  - FEMUR FRACTURE [None]
  - MUSCULOSKELETAL DISCOMFORT [None]
  - TOOTHACHE [None]
  - FACIAL PAIN [None]
  - STRESS FRACTURE [None]
  - TOOTH ABSCESS [None]
  - PAIN IN JAW [None]
  - GINGIVAL PAIN [None]
  - GINGIVAL SWELLING [None]
